FAERS Safety Report 8059575-6 (Version None)
Quarter: 2012Q1

REPORT INFORMATION
  Report Type: 
  Country: None (occurrence: None)
  Receive Date: 20120119
  Receipt Date: 20120119
  Transmission Date: 20120608
  Serious: Yes (Hospitalization)
  Sender: FDA-Public Use
  Company Number: None

PATIENT
  Sex: Female
  Weight: 64.59 kg

DRUGS (4)
  1. CISPLATIN [Suspect]
     Dosage: 93 MG
     Dates: end: 20120110
  2. OXYCODONE/ACETAMINOPHEN [Concomitant]
  3. TAXOTERE [Suspect]
     Dosage: 122 MG
     Dates: end: 20120110
  4. AMOXICILLIN [Concomitant]

REACTIONS (6)
  - HYPONATRAEMIA [None]
  - HYPOKALAEMIA [None]
  - FATIGUE [None]
  - HYPOMAGNESAEMIA [None]
  - VOMITING [None]
  - NAUSEA [None]
